FAERS Safety Report 12410925 (Version 1)
Quarter: 2016Q2

REPORT INFORMATION
  Report Type: Spontaneous
  Country: US (occurrence: None)
  Receive Date: 20160526
  Receipt Date: 20160526
  Transmission Date: 20160815
  Serious: No
  Sender: FDA-Public Use
  Company Number: None

PATIENT
  Age: 70 Year
  Sex: Male
  Weight: 95 kg

DRUGS (2)
  1. CASODEX [Suspect]
     Active Substance: BICALUTAMIDE
     Dates: end: 20160520
  2. TRIPTORELIN PAMOATE [Suspect]
     Active Substance: TRIPTORELIN PAMOATE
     Dates: end: 20160219

REACTIONS (6)
  - Feeling abnormal [None]
  - Insomnia [None]
  - Suicidal ideation [None]
  - Frustration tolerance decreased [None]
  - Stress [None]
  - Depression [None]

NARRATIVE: CASE EVENT DATE: 20160520
